FAERS Safety Report 7685981-5 (Version None)
Quarter: 2011Q3

REPORT INFORMATION
  Report Type: 
  Country: None (occurrence: None)
  Receive Date: 20110816
  Receipt Date: 20110803
  Transmission Date: 20111222
  Serious: No
  Sender: FDA-Public Use
  Company Number: US-PFIZER INC-FOR1000009033

PATIENT
  Age: 23 Year
  Sex: Female

DRUGS (4)
  1. NASAL PREPARATIONS [Concomitant]
  2. ADVAIR DISKUS 100/50 [Concomitant]
     Indication: ASTHMA
     Dosage: UNK
  3. CONTRACEPTIVE, UNSPECIFIED [Concomitant]
     Indication: CONTRACEPTION
  4. TESSALON [Suspect]
     Indication: COUGH
     Dosage: AS REQUIRED

REACTIONS (1)
  - DRUG SCREEN POSITIVE [None]
